FAERS Safety Report 7805166-9 (Version None)
Quarter: 2011Q4

REPORT INFORMATION
  Report Type: 
  Country: None (occurrence: None)
  Receive Date: 20111010
  Receipt Date: 20111005
  Transmission Date: 20120403
  Serious: Yes (Other)
  Sender: FDA-Public Use
  Company Number: PL-PFIZER INC-2011239121

PATIENT
  Age: 24 Year
  Sex: Female

DRUGS (1)
  1. METHYLPREDNISOLONE [Suspect]
     Indication: MULTIPLE SCLEROSIS

REACTIONS (3)
  - HEPATIC FUNCTION ABNORMAL [None]
  - HEPATITIS [None]
  - HEPATOTOXICITY [None]
